FAERS Safety Report 9779446 (Version 1)
Quarter: 2013Q4

REPORT INFORMATION
  Report Type: Spontaneous
  Country: CH (occurrence: CH)
  Receive Date: 20131223
  Receipt Date: 20131223
  Transmission Date: 20140711
  Serious: Yes (Other)
  Sender: FDA-Public Use
  Company Number: CH-PFIZER INC-2013364484

PATIENT
  Age: 90 Year
  Sex: Female

DRUGS (14)
  1. NEURONTIN [Suspect]
     Indication: POST HERPETIC NEURALGIA
     Dosage: 600 MG, 2X/DAY
     Route: 048
  2. NEURONTIN [Suspect]
     Indication: POST HERPETIC NEURALGIA
     Dosage: 400 MG, 1X/DAY
     Route: 048
  3. CORDARONE [Interacting]
     Indication: ATRIAL FIBRILLATION
     Dosage: 200 MG, 3X/DAY
     Route: 048
     Dates: start: 201309
  4. XARELTO [Interacting]
     Indication: ATRIAL FIBRILLATION
     Dosage: 15 MG, 1X/DAY
     Route: 048
     Dates: start: 20130925, end: 20131126
  5. TOREM [Concomitant]
     Indication: RENAL FAILURE CHRONIC
     Dosage: 10 MG, 1X/DAY
     Route: 048
     Dates: end: 20131119
  6. TRIATEC [Concomitant]
     Indication: ESSENTIAL HYPERTENSION
     Dosage: 10 MG, 1X/DAY
     Route: 048
  7. MAGNESIOCARD [Concomitant]
     Dosage: 10 MMOL, 2X/DAY
     Route: 048
  8. DAFALGAN [Concomitant]
     Indication: POST HERPETIC NEURALGIA
     Dosage: 1 G, 3X/DAY
     Route: 048
  9. SERESTA [Concomitant]
     Dosage: 15 MG, 1X/DAY
     Route: 048
  10. XYZAL [Concomitant]
     Indication: PRURITUS
     Dosage: 5 MG, 1X/DAY
     Route: 048
  11. EXCIPIAL U LIPOLOT [Concomitant]
     Dosage: 1 DF, 2X/DAY
     Route: 061
  12. AMLODIPINE [Concomitant]
     Dosage: 5 MG, 1X/DAY
     Route: 048
  13. LASIX [Concomitant]
     Indication: RENAL FAILURE CHRONIC
     Dosage: 40 MG, 1X/DAY
     Route: 042
     Dates: start: 20131119
  14. ROCEPHIN [Concomitant]
     Indication: URINARY TRACT INFECTION
     Dosage: 2 G, 1X/DAY
     Route: 042
     Dates: start: 20131119, end: 20131126

REACTIONS (4)
  - Purpura [Recovered/Resolved]
  - Drug interaction [Unknown]
  - Renal failure chronic [Unknown]
  - Urinary tract infection [Unknown]
